FAERS Safety Report 9762854 (Version 1)
Quarter: 2013Q4

REPORT INFORMATION
  Report Type: Spontaneous
  Country: US (occurrence: US)
  Receive Date: 20131216
  Receipt Date: 20131216
  Transmission Date: 20140711
  Serious: No
  Sender: FDA-Public Use
  Company Number: US-009507513-1311USA000471

PATIENT
  Sex: Female

DRUGS (2)
  1. NEXPLANON [Suspect]
     Indication: CONTRACEPTION
     Dosage: 1 SINGLE ROD/3 YEARS
     Route: 059
     Dates: start: 20131031, end: 20131031
  2. IMPLANON [Concomitant]
     Indication: CONTRACEPTION
     Dosage: 1 DF/3 YEARS
     Route: 059
     Dates: start: 201010, end: 20131031

REACTIONS (2)
  - Dyskinesia [Recovering/Resolving]
  - Complication of device insertion [Unknown]
